FAERS Safety Report 12519893 (Version 4)
Quarter: 2016Q3

REPORT INFORMATION
  Report Type: Spontaneous
  Country: IT (occurrence: IT)
  Receive Date: 20160630
  Receipt Date: 20160803
  Transmission Date: 20161109
  Serious: Yes (Hospitalization, Other)
  Sender: FDA-Public Use
  Company Number: IT-SA-2016SA103274

PATIENT
  Age: 72 Year
  Sex: Male

DRUGS (10)
  1. APIDRA [Suspect]
     Active Substance: INSULIN GLULISINE
     Indication: DIABETES MELLITUS
     Route: 065
  2. NEUPRO [Suspect]
     Active Substance: ROTIGOTINE
     Route: 062
  3. LANTUS [Suspect]
     Active Substance: INSULIN GLARGINE
     Indication: DIABETES MELLITUS
     Route: 065
  4. BLOPRESS [Suspect]
     Active Substance: CANDESARTAN CILEXETIL
     Dosage: DOSE-8M
     Route: 048
  5. ZOLOFT [Suspect]
     Active Substance: SERTRALINE HYDROCHLORIDE
     Route: 048
  6. LANTUS [Suspect]
     Active Substance: INSULIN GLARGINE
     Indication: DIABETES MELLITUS
     Route: 065
  7. UROREC [Suspect]
     Active Substance: SILODOSIN
     Dosage: FREQ-IN MORNING
     Route: 048
  8. MADOPAR [Suspect]
     Active Substance: BENSERAZIDE HYDROCHLORIDE\LEVODOPA
     Dosage: DOSE-HALF?TAP AT?PRINCIP?AL?MEALS
     Route: 048
  9. APIDRA [Suspect]
     Active Substance: INSULIN GLULISINE
     Indication: DIABETES MELLITUS
     Dosage: DOSE-4-6-4 IU AT PRINCIPAL MEALS
     Route: 065
  10. AVODART [Suspect]
     Active Substance: DUTASTERIDE
     Dosage: FREQ-IN MORNING
     Route: 048

REACTIONS (8)
  - Joint swelling [Unknown]
  - Hyperglycaemia [Unknown]
  - Vertigo [Unknown]
  - Paraesthesia [Unknown]
  - Dizziness [Unknown]
  - Nausea [Unknown]
  - Hypoglycaemia [Unknown]
  - Capillary disorder [Unknown]

NARRATIVE: CASE EVENT DATE: 20160301
